FAERS Safety Report 9863067 (Version 1)
Quarter: 2014Q1

REPORT INFORMATION
  Report Type: Report from Study
  Country: US (occurrence: US)
  Receive Date: 20140203
  Receipt Date: 20140203
  Transmission Date: 20141002
  Serious: Yes (Death, Hospitalization)
  Sender: FDA-Public Use
  Company Number: US-ABBVIE-14P-163-1196212-00

PATIENT
  Age: 54 Year
  Sex: Female

DRUGS (4)
  1. CREON [Suspect]
     Indication: PANCREATITIS
     Route: 048
     Dates: start: 201401
  2. PROZAC [Concomitant]
     Indication: DEPRESSION
     Route: 048
  3. UNKNOWN STOMACH ACID REDUCER MEDICINE [Concomitant]
     Indication: GASTRIC PH DECREASED
     Route: 048
  4. DIURETICS [Concomitant]
     Indication: PRODUCT USED FOR UNKNOWN INDICATION
     Route: 048

REACTIONS (4)
  - Pneumonia [Fatal]
  - Liver disorder [Fatal]
  - Asthenia [Not Recovered/Not Resolved]
  - Emphysema [Not Recovered/Not Resolved]
